FAERS Safety Report 19566839 (Version 1)
Quarter: 2021Q3

REPORT INFORMATION
  Report Type: Other
  Country: US (occurrence: US)
  Receive Date: 20210716
  Receipt Date: 20210716
  Transmission Date: 20211014
  Serious: Yes (Death, Other)
  Sender: FDA-Public Use
  Company Number: US-ROCHE-2870167

PATIENT

DRUGS (4)
  1. ERIBULIN [Suspect]
     Active Substance: ERIBULIN
     Indication: TRIPLE NEGATIVE BREAST CANCER
     Route: 065
  2. GEMCITABINE. [Suspect]
     Active Substance: GEMCITABINE
     Indication: TRIPLE NEGATIVE BREAST CANCER
     Route: 065
  3. VINORELBINE [Suspect]
     Active Substance: VINORELBINE TARTRATE
     Indication: TRIPLE NEGATIVE BREAST CANCER
     Route: 065
  4. CAPECITABINE. [Suspect]
     Active Substance: CAPECITABINE
     Indication: TRIPLE NEGATIVE BREAST CANCER
     Route: 065

REACTIONS (47)
  - Nausea [Unknown]
  - Peripheral sensory neuropathy [Unknown]
  - Liver function test increased [Unknown]
  - Fatigue [Unknown]
  - Neutrophil count decreased [Unknown]
  - Enteritis [Unknown]
  - Urinary tract infection [Unknown]
  - Pleural effusion [Unknown]
  - Febrile neutropenia [Unknown]
  - Myelodysplastic syndrome [Unknown]
  - Decreased appetite [Unknown]
  - Abdominal pain [Unknown]
  - Neutropenia [Unknown]
  - Thrombocytopenia [Unknown]
  - Lymphocyte count decreased [Unknown]
  - Blood magnesium decreased [Unknown]
  - Pancytopenia [Fatal]
  - Asthenia [Unknown]
  - Leukopenia [Unknown]
  - Palmar-plantar erythrodysaesthesia syndrome [Unknown]
  - Mucosal inflammation [Unknown]
  - Mastitis [Unknown]
  - Systemic candida [Unknown]
  - Type 1 diabetes mellitus [Unknown]
  - Pyrexia [Unknown]
  - Aspartate aminotransferase increased [Unknown]
  - Gamma-glutamyltransferase increased [Unknown]
  - Colitis [Unknown]
  - Pulmonary embolism [Unknown]
  - Tonsillitis [Unknown]
  - Stomatitis [Unknown]
  - Weight decreased [Unknown]
  - Abdominal distension [Unknown]
  - Hyponatraemia [Unknown]
  - Skin reaction [Unknown]
  - Sepsis [Fatal]
  - Constipation [Unknown]
  - White blood cell count decreased [Unknown]
  - Acute kidney injury [Unknown]
  - Haemothorax [Fatal]
  - Diarrhoea [Unknown]
  - Alanine aminotransferase increased [Unknown]
  - Anaemia [Unknown]
  - Myalgia [Unknown]
  - Chest pain [Unknown]
  - Pneumonia [Unknown]
  - Pharyngotonsillitis [Unknown]
